FAERS Safety Report 13075729 (Version 1)
Quarter: 2016Q4

REPORT INFORMATION
  Report Type: Spontaneous
  Country: US (occurrence: US)
  Receive Date: 20161229
  Receipt Date: 20161229
  Transmission Date: 20170207
  Serious: No
  Sender: FDA-Public Use
  Company Number: None

PATIENT
  Age: 50 Year
  Sex: Female
  Weight: 76.5 kg

DRUGS (1)
  1. CITALOPRAM [Suspect]
     Active Substance: CITALOPRAM HYDROBROMIDE
     Indication: DEPRESSION
     Route: 048
     Dates: start: 20161116, end: 20161228

REACTIONS (8)
  - Paraesthesia [None]
  - Confusional state [None]
  - Headache [None]
  - Hyperhidrosis [None]
  - Product substitution issue [None]
  - Heart rate increased [None]
  - Speech disorder [None]
  - Aphasia [None]

NARRATIVE: CASE EVENT DATE: 20161228
